FAERS Safety Report 12115431 (Version 1)
Quarter: 2016Q1

REPORT INFORMATION
  Report Type: Report from Study
  Country: VE (occurrence: VE)
  Receive Date: 20160225
  Receipt Date: 20160225
  Transmission Date: 20160526
  Serious: Yes (Death, Other)
  Sender: FDA-Public Use
  Company Number: VE-ABBVIE-14P-178-1245046-00

PATIENT
  Age: 64 Year

DRUGS (1)
  1. HUMIRA [Suspect]
     Active Substance: ADALIMUMAB
     Indication: RHEUMATOID ARTHRITIS
     Route: 058
     Dates: start: 2007, end: 2014

REACTIONS (3)
  - Pancytopenia [Unknown]
  - Leukopenia [Unknown]
  - Respiratory arrest [Fatal]

NARRATIVE: CASE EVENT DATE: 2012
